FAERS Safety Report 14570135 (Version 1)
Quarter: 2018Q1

REPORT INFORMATION
  Report Type: Spontaneous
  Country: US (occurrence: US)
  Receive Date: 20180225
  Receipt Date: 20180225
  Transmission Date: 20180509
  Serious: No
  Sender: FDA-Public Use
  Company Number: US-BRISTOL-MYERS SQUIBB COMPANY-BMS-2018-014930

PATIENT
  Sex: Female

DRUGS (3)
  1. KENALOG-40 [Suspect]
     Active Substance: TRIAMCINOLONE ACETONIDE
     Indication: BURSITIS
     Dosage: UNK UNK, QD
     Route: 065
     Dates: start: 20180213, end: 20180213
  2. PROBIOTIC                          /06395501/ [Concomitant]
     Active Substance: BIFIDOBACTERIUM ANIMALIS LACTIS
     Indication: PRODUCT USED FOR UNKNOWN INDICATION
     Route: 065
  3. KENALOG-40 [Suspect]
     Active Substance: TRIAMCINOLONE ACETONIDE
     Indication: INFLAMMATION
     Route: 065

REACTIONS (8)
  - Headache [Unknown]
  - Flushing [Unknown]
  - Dry mouth [Unknown]
  - Photosensitivity reaction [Unknown]
  - Tinnitus [Unknown]
  - Dizziness [Unknown]
  - Nausea [Unknown]
  - Malaise [Unknown]
